FAERS Safety Report 8205318-2 (Version None)
Quarter: 2012Q1

REPORT INFORMATION
  Report Type: 
  Country: None (occurrence: None)
  Receive Date: 20120313
  Receipt Date: 20120301
  Transmission Date: 20120608
  Serious: Yes (Other)
  Sender: FDA-Public Use
  Company Number: CA-JNJFOC-20120301261

PATIENT
  Sex: Female
  Weight: 138.9 kg

DRUGS (4)
  1. DEMEROL [Concomitant]
     Route: 065
  2. PRILOSEC [Concomitant]
     Route: 065
  3. REMICADE [Suspect]
     Indication: CROHN'S DISEASE
     Dosage: THE PATIENT HAS HAD 4 INFUSIONS
     Route: 042
  4. IMURAN [Concomitant]
     Route: 065

REACTIONS (2)
  - MATERNAL EXPOSURE DURING PREGNANCY [None]
  - FISTULA [None]
